FAERS Safety Report 25397039 (Version 2)
Quarter: 2025Q2

REPORT INFORMATION
  Report Type: Report from Study
  Country: CA (occurrence: CA)
  Receive Date: 20250604
  Receipt Date: 20250610
  Transmission Date: 20250717
  Serious: Yes (Hospitalization, Other)
  Sender: BRISTOL-MYERS SQUIBB COMPANY
  Company Number: CA-BRISTOL-MYERS SQUIBB COMPANY-2025-062239

PATIENT
  Age: 69 Year
  Sex: Female
  Weight: 94 kg

DRUGS (5)
  1. ORENCIA [Suspect]
     Active Substance: ABATACEPT
     Indication: Rheumatoid arthritis
     Dosage: Q 4 WEEKS
     Route: 042
     Dates: start: 20070821
  2. ORENCIA [Suspect]
     Active Substance: ABATACEPT
     Dosage: Q 4 WEEKS
     Route: 042
     Dates: start: 20250401
  3. ORENCIA [Suspect]
     Active Substance: ABATACEPT
     Dosage: Q 4 WEEKS
     Route: 042
     Dates: start: 20250604
  4. BETAHISTINE [Concomitant]
     Active Substance: BETAHISTINE
     Indication: Product used for unknown indication
     Dates: start: 20220224
  5. METHOTREXATE SODIUM [Concomitant]
     Active Substance: METHOTREXATE SODIUM
     Indication: Product used for unknown indication

REACTIONS (6)
  - Internal haemorrhage [Unknown]
  - Pain in extremity [Unknown]
  - Back pain [Unknown]
  - Arthralgia [Unknown]
  - Prescribed overdose [Unknown]
  - General physical health deterioration [Not Recovered/Not Resolved]
